FAERS Safety Report 13882098 (Version 1)
Quarter: 2017Q3

REPORT INFORMATION
  Report Type: Report from Study
  Country: CA (occurrence: CA)
  Receive Date: 20170818
  Receipt Date: 20170818
  Transmission Date: 20171127
  Serious: Yes (Other)
  Sender: FDA-Public Use
  Company Number: CA-TEVA-798412USA

PATIENT

DRUGS (2)
  1. FLUPENTIXOL [Suspect]
     Active Substance: FLUPENTIXOL
     Route: 065
  2. HALOPERIDOL. [Suspect]
     Active Substance: HALOPERIDOL
     Route: 065

REACTIONS (3)
  - Generalised tonic-clonic seizure [Unknown]
  - Partial seizures [Unknown]
  - Neuroleptic malignant syndrome [Unknown]
